FAERS Safety Report 5903598-7 (Version None)
Quarter: 2008Q3

REPORT INFORMATION
  Report Type: 
  Country: None (occurrence: None)
  Receive Date: 20080930
  Receipt Date: 20080918
  Transmission Date: 20090109
  Serious: Yes (Other)
  Sender: FDA-Public Use
  Company Number: US-PFIZER INC-2008080631

PATIENT
  Sex: Female

DRUGS (4)
  1. CHANTIX [Suspect]
  2. XANAX [Concomitant]
  3. ZOLOFT [Concomitant]
  4. INSULIN [Concomitant]

REACTIONS (2)
  - PANCREATIC INSUFFICIENCY [None]
  - PHYSICAL ASSAULT [None]
